FAERS Safety Report 19652093 (Version 2)
Quarter: 2021Q3

REPORT INFORMATION
  Report Type: Report from Study
  Country: BR (occurrence: BR)
  Receive Date: 20210803
  Receipt Date: 20210928
  Transmission Date: 20211014
  Serious: Yes (Disabling)
  Sender: FDA-Public Use
  Company Number: BR-SA-2017SA119534

PATIENT
  Age: 14 Year
  Sex: Female
  Weight: 50 kg

DRUGS (5)
  1. LARONIDASE [Suspect]
     Active Substance: LARONIDASE
     Indication: MUCOPOLYSACCHARIDOSIS I
     Dosage: 13.5 VIALS PER INFUSION
     Route: 041
     Dates: start: 201001
  2. LARONIDASE [Suspect]
     Active Substance: LARONIDASE
     Dosage: 39 MG, QOW
     Route: 041
     Dates: start: 20101001
  3. CARVEDILOL. [Concomitant]
     Active Substance: CARVEDILOL
     Dosage: 2 DF,QD (/ IN THE MORNING; AT NIGHT)
     Dates: start: 2005
  4. CAPTOPRIL. [Concomitant]
     Active Substance: CAPTOPRIL
     Dosage: 1.5 DF,QD
     Dates: start: 2011
  5. LARONIDASE [Suspect]
     Active Substance: LARONIDASE
     Dosage: 19.5 MG
     Route: 041
     Dates: start: 2017

REACTIONS (9)
  - Chest pain [Not Recovered/Not Resolved]
  - Product availability issue [Unknown]
  - Pain in extremity [Not Recovered/Not Resolved]
  - Illness [Unknown]
  - Blood pressure increased [Not Recovered/Not Resolved]
  - Gait inability [Not Recovered/Not Resolved]
  - Arthralgia [Not Recovered/Not Resolved]
  - Abdominal pain [Not Recovered/Not Resolved]
  - Intentional product use issue [Unknown]

NARRATIVE: CASE EVENT DATE: 2016
